FAERS Safety Report 8382721-1 (Version None)
Quarter: 2012Q2

REPORT INFORMATION
  Report Type: 
  Country: None (occurrence: None)
  Receive Date: 20120524
  Receipt Date: 20120410
  Transmission Date: 20120825
  Serious: No
  Sender: FDA-Public Use
  Company Number: US-ALLERGAN-1203991US

PATIENT
  Age: 46 Year
  Sex: Female
  Weight: 77.098 kg

DRUGS (3)
  1. ALLEGRA-D 12 HOUR [Concomitant]
     Indication: HYPERSENSITIVITY
     Dosage: 1 DF, QD
     Route: 048
  2. LASTACAFT [Suspect]
     Indication: HYPERSENSITIVITY
     Dosage: 2 GTT, QD
     Route: 047
     Dates: start: 20120318, end: 20120318
  3. LASTACAFT [Suspect]
     Dosage: 2 GTT, QD
     Route: 047
     Dates: start: 20111201, end: 20120201

REACTIONS (6)
  - CONJUNCTIVITIS VIRAL [None]
  - EYE SWELLING [None]
  - PAIN [None]
  - ERYTHEMA [None]
  - EYE INFECTION [None]
  - EYE DISCHARGE [None]
